FAERS Safety Report 4300741-0 (Version None)
Quarter: 2004Q1

REPORT INFORMATION
  Report Type: 
  Country: None (occurrence: None)
  Receive Date: 20040220
  Receipt Date: 20040220
  Transmission Date: 20041129
  Serious: Yes (Other)
  Sender: FDA-Public Use
  Company Number: None

PATIENT

DRUGS (1)
  1. TUBERSOL [Suspect]
     Indication: TUBERCULIN TEST
     Dosage: 0.1ML X1, INTRACUTANEOUS
     Dates: start: 20040203, end: 20040204

REACTIONS (9)
  - CHILLS [None]
  - ERYTHEMA [None]
  - HEADACHE [None]
  - INDURATION [None]
  - NAUSEA [None]
  - PAIN [None]
  - PHARMACEUTICAL PRODUCT COMPLAINT [None]
  - PRURITUS [None]
  - VOMITING [None]
